FAERS Safety Report 8118538-2 (Version None)
Quarter: 2012Q1

REPORT INFORMATION
  Report Type: 
  Country: None (occurrence: None)
  Receive Date: 20120207
  Receipt Date: 20120123
  Transmission Date: 20120608
  Serious: Yes (Life-Threatening, Hospitalization, Other)
  Sender: FDA-Public Use
  Company Number: JP-AMGEN-JPNSP2012002771

PATIENT
  Age: 71 Year
  Sex: Female
  Weight: 43 kg

DRUGS (3)
  1. ENBREL [Suspect]
     Indication: PRODUCT USED FOR UNKNOWN INDICATION
     Dosage: 25 MG, UNK
     Route: 058
     Dates: start: 20090826, end: 20110101
  2. METHOTREXATE SODIUM [Suspect]
     Dosage: 4 MG, WEEKLY (2 MG CAPSULES)
     Route: 048
     Dates: start: 20041116, end: 20120112
  3. BASEN [Concomitant]
     Dosage: UNK

REACTIONS (3)
  - THROMBOCYTOPENIA [None]
  - ANAEMIA [None]
  - RENAL IMPAIRMENT [None]
